FAERS Safety Report 7505152-2 (Version None)
Quarter: 2011Q2

REPORT INFORMATION
  Report Type: 
  Country: None (occurrence: None)
  Receive Date: 20110526
  Receipt Date: 20101119
  Transmission Date: 20111010
  Serious: Yes (Hospitalization, Other)
  Sender: FDA-Public Use
  Company Number: US-BAYER-200942251NA

PATIENT
  Age: 19 Year
  Sex: Female
  Weight: 57.143 kg

DRUGS (25)
  1. DARVOCET [Concomitant]
     Dosage: UNK
     Dates: start: 20061111
  2. ALBUTEROL SULFATE AUTOHALER [Concomitant]
     Indication: DYSPNOEA
     Dosage: UNK UNK, QD
     Dates: start: 20061111
  3. ROCEPHIN [Concomitant]
     Indication: PNEUMONIA
     Dosage: UNK
     Dates: start: 20061111
  4. FLEXERIL [Concomitant]
  5. CEFTRIAXONE [Concomitant]
  6. ZITHROMAX [Concomitant]
     Indication: PNEUMONIA
  7. COLACE [Concomitant]
  8. AMBIEN [Concomitant]
  9. DARVON [Concomitant]
     Indication: PAIN
     Dosage: UNK UNK, QD
  10. MORPHINE [Concomitant]
     Indication: PAIN
  11. BISACODYL [Concomitant]
  12. MONISTAT [Concomitant]
  13. SKELAXIN [Concomitant]
     Dosage: 800 MG, QID
  14. YASMIN [Suspect]
     Indication: MENSTRUAL CYCLE MANAGEMENT
  15. HPV VACCINE [Concomitant]
  16. BENADRYL [Concomitant]
     Dosage: 25 MG, UNK
  17. LORTAB [Concomitant]
     Dosage: 5 MG, PRN
  18. PHENERGAN HCL [Concomitant]
     Indication: NAUSEA
     Dosage: UNK UNK, QD
  19. HYDROCODONE BITARTRATE AND ACETAMINOPHEN [Concomitant]
  20. ADVAIR DISKUS 100/50 [Concomitant]
  21. YASMIN [Suspect]
     Indication: CONTRACEPTION
     Dates: start: 20060801
  22. ORTHO TRI-CYCLEN [Concomitant]
  23. ZITHROMAX [Concomitant]
     Indication: PNEUMONIA
     Dosage: UNK
     Dates: start: 20061111
  24. AZITHROMYCIN [Concomitant]
     Indication: ANTIBIOTIC THERAPY
     Dosage: UNK UNK, QD
  25. ZOLPIDEM [Concomitant]

REACTIONS (4)
  - OEDEMA PERIPHERAL [None]
  - PULMONARY EMBOLISM [None]
  - PULMONARY FIBROSIS [None]
  - DEEP VEIN THROMBOSIS [None]
